FAERS Safety Report 5855639-3 (Version None)
Quarter: 2008Q3

REPORT INFORMATION
  Report Type: 
  Country: None (occurrence: None)
  Receive Date: 20080823
  Receipt Date: 20080811
  Transmission Date: 20090109
  Serious: Yes (Other)
  Sender: FDA-Public Use
  Company Number: US-ELI_LILLY_AND_COMPANY-US200808002566

PATIENT
  Sex: Female
  Weight: 64.853 kg

DRUGS (15)
  1. BYETTA [Suspect]
     Indication: TYPE 2 DIABETES MELLITUS
     Dosage: 5 UG, 2/D
     Route: 058
     Dates: start: 20070101, end: 20070101
  2. BYETTA [Suspect]
     Dosage: 10 UG, 2/D
     Route: 058
     Dates: start: 20070101, end: 20070101
  3. BYETTA [Suspect]
     Dosage: 10 UG, 2/D
     Route: 058
     Dates: start: 20070101
  4. ASPIRIN [Concomitant]
     Dosage: 325 MG, EACH MORNING
  5. BENAZEPRIL HYDROCHLORIDE [Concomitant]
     Dosage: 40 MG, EACH MORNING
  6. PRILOSEC [Concomitant]
     Dosage: 20 MG, EACH MORNING
  7. PRAVASTATIN [Concomitant]
     Dosage: 40 MG, EACH EVENING
  8. SYNTHROID [Concomitant]
     Dosage: 25 UG, EACH MORNING
  9. DIABETA [Concomitant]
     Indication: TYPE 2 DIABETES MELLITUS
     Dosage: 5 MG, AS NEEDED
  10. DIABETA [Concomitant]
     Dosage: 10 MG, 2/D
     Dates: start: 20071201, end: 20080101
  11. DIABETA [Concomitant]
     Dosage: 2.5 MG, AS NEEDED
  12. DIABETA [Concomitant]
     Dosage: 1.25 MG, AS NEEDED
  13. ICAPS [Concomitant]
     Indication: EYE DISORDER
  14. FISH OIL [Concomitant]
     Dosage: 2000 MG, 2/D
  15. AVAPRO [Concomitant]
     Dosage: 150 MG, 2/D
     Dates: end: 20080101

REACTIONS (10)
  - BLINDNESS TRANSIENT [None]
  - BLOOD GLUCOSE DECREASED [None]
  - BLOOD GLUCOSE INCREASED [None]
  - BLOOD PRESSURE INCREASED [None]
  - CARDIAC PACEMAKER MALFUNCTION [None]
  - CYANOPSIA [None]
  - FEAR [None]
  - FEELING ABNORMAL [None]
  - INCORRECT DOSE ADMINISTERED [None]
  - WEIGHT DECREASED [None]
